FAERS Safety Report 17956305 (Version 2)
Quarter: 2020Q3

REPORT INFORMATION
  Report Type: Spontaneous
  Country: JP (occurrence: JP)
  Receive Date: 20200629
  Receipt Date: 20200813
  Transmission Date: 20201103
  Serious: Yes (Other)
  Sender: FDA-Public Use
  Company Number: JP-ROCHE-2632406

PATIENT
  Age: 63 Year
  Sex: Female
  Weight: 46 kg

DRUGS (5)
  1. KREMEZIN [Concomitant]
     Active Substance: ACTIVATED CHARCOAL
     Indication: CHRONIC KIDNEY DISEASE
     Dosage: KREMEZIN(SPHERICAL CARBON ADSORBENT) (2 G)?(2 G,1 IN 8 HR)
     Route: 048
     Dates: start: 20180803
  2. ZETIA [Concomitant]
     Active Substance: EZETIMIBE
     Indication: HYPERURICAEMIA
     Dosage: ZETIA (EZETIMIBE)?10 MG (10 MG,1 IN 1 D)
     Route: 048
  3. FEBURIC [Concomitant]
     Active Substance: FEBUXOSTAT
     Indication: HYPERURICAEMIA
     Dosage: FEBURIC (FEBUXOSTAT)?(20 MG,1 IN 1 D)
     Route: 048
  4. LOTRIGA [Concomitant]
     Active Substance: OMEGA-3-ACID ETHYL ESTERS
     Indication: HYPERLIPIDAEMIA
     Dosage: LOTRIGA (OMEGA?3?ACID ETHYL ESTERS)?2 GM (2 GM,1 IN 1 D)
     Route: 048
     Dates: start: 20171011
  5. BONVIVA [Suspect]
     Active Substance: IBANDRONATE SODIUM
     Indication: OSTEOPOROSIS
     Dosage: (1 MG,1 IN 1 M)
     Route: 042
     Dates: start: 20200605

REACTIONS (1)
  - Hypocalcaemia [Recovered/Resolved]

NARRATIVE: CASE EVENT DATE: 20200606
